FAERS Safety Report 8303220-9 (Version None)
Quarter: 2012Q2

REPORT INFORMATION
  Report Type: 
  Country: None (occurrence: None)
  Receive Date: 20120423
  Receipt Date: 20120412
  Transmission Date: 20120825
  Serious: No
  Sender: FDA-Public Use
  Company Number: US-BIOGENIDEC-2012BI013037

PATIENT
  Age: 47 Year
  Sex: Female

DRUGS (2)
  1. TYSABRI [Suspect]
     Indication: MULTIPLE SCLEROSIS
     Route: 042
     Dates: start: 20050225
  2. TYSABRI [Suspect]
     Route: 042
     Dates: start: 20120215

REACTIONS (4)
  - MENOPAUSAL SYMPTOMS [None]
  - PAIN IN EXTREMITY [None]
  - NAUSEA [None]
  - ABDOMINAL PAIN UPPER [None]
